FAERS Safety Report 9050999 (Version 3)
Quarter: 2013Q1

REPORT INFORMATION
  Report Type: Spontaneous
  Country: US (occurrence: US)
  Receive Date: 20130205
  Receipt Date: 20130213
  Transmission Date: 20140127
  Serious: Yes (Death)
  Sender: FDA-Public Use
  Company Number: US-PFIZER INC-2013046573

PATIENT
  Sex: 0

DRUGS (3)
  1. PROTONIX [Suspect]
     Dosage: 40 MG, UNK
  2. ZOLOFT [Suspect]
     Dosage: 100 MG, UNK
  3. ALDACTONE [Suspect]
     Dosage: 25 MG, UNK

REACTIONS (1)
  - Death [Fatal]
